FAERS Safety Report 25948872 (Version 1)
Quarter: 2025Q4

REPORT INFORMATION
  Report Type: Spontaneous
  Country: US (occurrence: US)
  Receive Date: 20251022
  Receipt Date: 20251022
  Transmission Date: 20260118
  Serious: No
  Sender: FRESENIUS KABI
  Company Number: US-FreseniusKabi-FK202514074

PATIENT

DRUGS (1)
  1. XYLOCAINE WITH EPINEPHRINE [Suspect]
     Active Substance: EPINEPHRINE BITARTRATE\LIDOCAINE HYDROCHLORIDE
     Indication: Product used for unknown indication
     Dosage: FOA: INJECTION?XYLOCAINE 1 % (LIDOCAINE HCL AND EPINEPHRINE INJECTION) 200 MG/20 ML

REACTIONS (1)
  - Drug ineffective [Unknown]
